FAERS Safety Report 11717068 (Version 1)
Quarter: 2015Q4

REPORT INFORMATION
  Report Type: Spontaneous
  Country: GB (occurrence: CA)
  Receive Date: 20151109
  Receipt Date: 20151109
  Transmission Date: 20160304
  Serious: Yes (Life-Threatening, Hospitalization)
  Sender: FDA-Public Use
  Company Number: GB-PFIZER INC-2015379407

PATIENT
  Age: 57 Year
  Sex: Female
  Weight: 60 kg

DRUGS (4)
  1. RIVOTRIL [Suspect]
     Active Substance: CLONAZEPAM
     Dosage: 25 MG, UNK
     Route: 048
     Dates: start: 20000425, end: 20000425
  2. LITHIUM. [Concomitant]
     Active Substance: LITHIUM
     Dosage: UNK
  3. CELEBREX [Suspect]
     Active Substance: CELECOXIB
     Dosage: 2000 MG, UNK
     Route: 048
     Dates: start: 20000425, end: 20000425
  4. EMPRACET WITH CODEINE [Suspect]
     Active Substance: ACETAMINOPHEN\CODEINE PHOSPHATE
     Dosage: 9240 MG, UNK
     Route: 048
     Dates: start: 20000425, end: 20000425

REACTIONS (5)
  - Acute kidney injury [Recovering/Resolving]
  - Overdose [None]
  - Overdose [Recovering/Resolving]
  - Hepatocellular injury [Recovering/Resolving]
  - Metabolic acidosis [Recovering/Resolving]

NARRATIVE: CASE EVENT DATE: 20000425
